FAERS Safety Report 4758180-4 (Version None)
Quarter: 2005Q3

REPORT INFORMATION
  Report Type: 
  Country: None (occurrence: None)
  Receive Date: 20050831
  Receipt Date: 20050427
  Transmission Date: 20060218
  Serious: Yes (Disabling, Other)
  Sender: FDA-Public Use
  Company Number: CA-MERCK-0505CAN00029

PATIENT
  Age: 45 Year
  Sex: Male
  Weight: 100 kg

DRUGS (38)
  1. VIOXX [Suspect]
     Indication: ARTHRITIS
     Route: 048
     Dates: start: 19990701, end: 20041001
  2. VIOXX [Suspect]
     Indication: BACK PAIN
     Route: 048
     Dates: start: 19990701, end: 20041001
  3. OXYCODONE HYDROCHLORIDE [Concomitant]
     Indication: PAIN
     Route: 065
     Dates: start: 20011201
  4. [THERAPY UNSPECIFIED] [Concomitant]
     Route: 065
  5. CETIRIZINE HYDROCHLORIDE [Concomitant]
     Indication: HYPERSENSITIVITY
     Route: 065
  6. ASPIRIN [Concomitant]
     Route: 065
     Dates: start: 19980101
  7. ACETAMINOPHEN AND CODEINE PHOSPHATE [Concomitant]
     Indication: PAIN
     Route: 065
     Dates: start: 19980101
  8. GABAPENTIN [Concomitant]
     Indication: PAIN
     Route: 065
     Dates: start: 20030201
  9. GABAPENTIN [Concomitant]
     Route: 065
     Dates: start: 20030401
  10. GABAPENTIN [Concomitant]
     Route: 065
     Dates: start: 20030601
  11. GABAPENTIN [Concomitant]
     Route: 065
     Dates: start: 20030701
  12. DICLOFENAC SODIUM AND MISOPROSTOL [Concomitant]
     Indication: PAIN
     Route: 065
     Dates: start: 19980501
  13. DICLOFENAC SODIUM AND MISOPROSTOL [Concomitant]
     Route: 065
     Dates: start: 19980601
  14. DICLOFENAC SODIUM AND MISOPROSTOL [Concomitant]
     Route: 065
     Dates: start: 20020301
  15. DICLOFENAC SODIUM AND MISOPROSTOL [Concomitant]
     Route: 065
     Dates: start: 20030701
  16. MEPERIDINE HYDROCHLORIDE [Concomitant]
     Indication: PAIN
     Route: 065
     Dates: start: 19980401
  17. MEPERIDINE HYDROCHLORIDE [Concomitant]
     Route: 065
     Dates: start: 19990501
  18. MEPERIDINE HYDROCHLORIDE [Concomitant]
     Route: 065
     Dates: start: 20011201
  19. ETODOLAC [Concomitant]
     Route: 065
     Dates: start: 19990601
  20. NAPROXEN [Concomitant]
     Indication: PAIN
     Route: 065
     Dates: start: 19980901, end: 19990201
  21. CYCLOBENZAPRINE HYDROCHLORIDE [Concomitant]
     Indication: PAIN
     Route: 065
     Dates: start: 19981001, end: 19990501
  22. CYCLOBENZAPRINE HYDROCHLORIDE [Concomitant]
     Route: 065
     Dates: start: 20010601
  23. CYCLOBENZAPRINE HYDROCHLORIDE [Concomitant]
     Route: 065
     Dates: start: 20010901
  24. CYCLOBENZAPRINE HYDROCHLORIDE [Concomitant]
     Route: 065
     Dates: start: 20020801
  25. KETOROLAC TROMETHAMINE [Concomitant]
     Indication: PAIN
     Route: 065
     Dates: start: 20010501
  26. KETOROLAC TROMETHAMINE [Concomitant]
     Route: 065
     Dates: start: 20010701
  27. KETOROLAC TROMETHAMINE [Concomitant]
     Route: 065
     Dates: start: 20010901
  28. KETOROLAC TROMETHAMINE [Concomitant]
     Route: 065
     Dates: start: 20011101
  29. KETOROLAC TROMETHAMINE [Concomitant]
     Route: 065
     Dates: start: 20011201
  30. AMITRIPTYLINE HYDROCHLORIDE [Concomitant]
     Route: 065
  31. OMEPRAZOLE SODIUM [Concomitant]
     Indication: GASTROOESOPHAGEAL REFLUX DISEASE
     Route: 065
  32. OMEPRAZOLE SODIUM [Concomitant]
     Indication: ULCER
     Route: 065
  33. SILDENAFIL CITRATE [Concomitant]
     Indication: ERECTILE DYSFUNCTION
     Route: 065
  34. BUDESONIDE [Concomitant]
     Indication: GASTROOESOPHAGEAL REFLUX DISEASE
     Route: 065
  35. BUDESONIDE [Concomitant]
     Indication: ULCER
     Route: 065
  36. LORAZEPAM [Concomitant]
     Route: 065
  37. LORATADINE [Concomitant]
     Route: 065
  38. AMOXICILLIN AND CLAVULANATE POTASSIUM [Concomitant]
     Route: 065

REACTIONS (6)
  - ANXIETY [None]
  - CEREBROVASCULAR ACCIDENT [None]
  - CONDITION AGGRAVATED [None]
  - DEPRESSION [None]
  - HYPERTENSION [None]
  - MYOCARDIAL INFARCTION [None]
